FAERS Safety Report 4396577-5 (Version None)
Quarter: 2004Q3

REPORT INFORMATION
  Report Type: 
  Country: None (occurrence: None)
  Receive Date: 20040712
  Receipt Date: 20040527
  Transmission Date: 20050211
  Serious: Yes (Hospitalization)
  Sender: FDA-Public Use
  Company Number: 04P-020-0265715-00

PATIENT
  Age: 63 Year
  Sex: Female

DRUGS (2)
  1. MERIDIA [Suspect]
     Indication: WEIGHT CONTROL
     Dosage: 1 TABLET, 1 IN 1 D, PER ORAL
     Route: 048
  2. TIBOLONE [Concomitant]

REACTIONS (1)
  - ARRHYTHMIA [None]
